FAERS Safety Report 5731266-3 (Version None)
Quarter: 2008Q2

REPORT INFORMATION
  Report Type: 
  Country: None (occurrence: None)
  Receive Date: 20080505
  Receipt Date: 20080422
  Transmission Date: 20081010
  Serious: Yes (Hospitalization)
  Sender: FDA-Public Use
  Company Number: DSJ-2008-04983

PATIENT
  Age: 64 Year
  Sex: Male

DRUGS (3)
  1. OLMESARTAN MEDOXOMIL [Suspect]
     Dosage: PER ORAL
     Route: 048
  2. ARTIST (CARVEDILOL) (TABLET) (CARVEDILOL) [Suspect]
     Dosage: PER ORAL
     Route: 048
  3. PARIET (RABEPRAZOLE SODIUM) (RABEPRAZOLE SODIUM) [Suspect]

REACTIONS (2)
  - TOXIC EPIDERMAL NECROLYSIS [None]
  - VIRAL TEST POSITIVE [None]
